FAERS Safety Report 12443520 (Version 2)
Quarter: 2016Q2

REPORT INFORMATION
  Report Type: Report from Study
  Country: ZA (occurrence: ZA)
  Receive Date: 20160607
  Receipt Date: 20160629
  Transmission Date: 20160815
  Serious: Yes (Hospitalization)
  Sender: FDA-Public Use
  Company Number: ZA-ABBVIE-16K-143-1643763-00

PATIENT
  Sex: Male
  Weight: 64 kg

DRUGS (7)
  1. SYMBICORD [Concomitant]
     Active Substance: BUDESONIDE\FORMOTEROL
     Indication: PRODUCT USED FOR UNKNOWN INDICATION
  2. PREDNISONE. [Concomitant]
     Active Substance: PREDNISONE
     Indication: PRODUCT USED FOR UNKNOWN INDICATION
  3. FLIXONASE [Concomitant]
     Active Substance: FLUTICASONE PROPIONATE
     Indication: RHINITIS ALLERGIC
  4. HUMIRA [Suspect]
     Active Substance: ADALIMUMAB
     Indication: ANKYLOSING SPONDYLITIS
     Route: 058
     Dates: start: 20151112
  5. ASTHAVENT [Concomitant]
     Indication: PRODUCT USED FOR UNKNOWN INDICATION
  6. TOPRAZ [Concomitant]
     Indication: PRODUCT USED FOR UNKNOWN INDICATION
  7. SINUS MEDICATION [Concomitant]
     Active Substance: UNSPECIFIED INGREDIENT
     Indication: PRODUCT USED FOR UNKNOWN INDICATION

REACTIONS (4)
  - Rhinitis [Recovering/Resolving]
  - Inflammatory marker increased [Recovering/Resolving]
  - Asthma [Unknown]
  - Chronic obstructive pulmonary disease [Unknown]
